FAERS Safety Report 10311045 (Version 3)
Quarter: 2015Q1

REPORT INFORMATION
  Report Type: Spontaneous
  Country: US (occurrence: US)
  Receive Date: 20140717
  Receipt Date: 20150212
  Transmission Date: 20150720
  Serious: Yes (Hospitalization, Other)
  Sender: FDA-Public Use
  Company Number: US-PFIZER INC-2014195693

PATIENT
  Age: 45 Year
  Sex: Male

DRUGS (7)
  1. XALKORI [Suspect]
     Active Substance: CRIZOTINIB
     Indication: CHRONIC MYELOID LEUKAEMIA
     Dosage: 60 MG, 2X/DAY
     Dates: start: 201404
  2. XALKORI [Suspect]
     Active Substance: CRIZOTINIB
     Indication: THROMBOSIS
     Dosage: 250 MG, 2X/DAY
     Dates: start: 20140516, end: 20140711
  3. ZYKADIA [Concomitant]
     Active Substance: CERITINIB
     Dosage: UNK
     Dates: start: 201412
  4. MORPHINE [Concomitant]
     Active Substance: MORPHINE
     Dosage: UNK
     Dates: start: 201404
  5. XALKORI [Suspect]
     Active Substance: CRIZOTINIB
     Dosage: 250 MG, 2X/DAY
     Dates: start: 20140910, end: 2014
  6. REGLAN [Concomitant]
     Active Substance: METOCLOPRAMIDE HYDROCHLORIDE
     Dosage: UNK
     Dates: start: 201406
  7. NORCO [Concomitant]
     Active Substance: ACETAMINOPHEN\HYDROCODONE BITARTRATE
     Dosage: UNK
     Dates: start: 201404

REACTIONS (5)
  - Product use issue [Recovered/Resolved]
  - Pericardial effusion [Recovered/Resolved]
  - Chronic myeloid leukaemia [Unknown]
  - Pleural effusion [Recovered/Resolved]
  - Disease progression [Recovered/Resolved]

NARRATIVE: CASE EVENT DATE: 201407
